FAERS Safety Report 18199129 (Version 1)
Quarter: 2020Q3

REPORT INFORMATION
  Report Type: Spontaneous
  Country: US (occurrence: US)
  Receive Date: 20200826
  Receipt Date: 20200826
  Transmission Date: 20201103
  Serious: Yes (Hospitalization, Other)
  Sender: FDA-Public Use
  Company Number: US-009507513-2008USA011957

PATIENT
  Age: 73 Year
  Sex: Male

DRUGS (2)
  1. SINGULAIR [Suspect]
     Active Substance: MONTELUKAST SODIUM
     Indication: ASTHMA
     Dosage: 10 MILLIGRAM, ONCE DAILY IN THE EVENING (QD)
     Route: 048
  2. QVAR [Concomitant]
     Active Substance: BECLOMETHASONE DIPROPIONATE
     Dosage: UNK

REACTIONS (2)
  - Product dose omission issue [Unknown]
  - Ventricular tachycardia [Not Recovered/Not Resolved]

NARRATIVE: CASE EVENT DATE: 20200622
